FAERS Safety Report 14500275 (Version 1)
Quarter: 2018Q1

REPORT INFORMATION
  Report Type: Spontaneous
  Country: GB (occurrence: GB)
  Receive Date: 20180207
  Receipt Date: 20180207
  Transmission Date: 20180509
  Serious: Yes (Other)
  Sender: FDA-Public Use
  Company Number: GB-MYLANLABS-2018M1007830

PATIENT
  Age: 74 Year
  Sex: Female
  Weight: 72 kg

DRUGS (6)
  1. TRAMADOL. [Suspect]
     Active Substance: TRAMADOL
     Dosage: 200 MG, QD
     Route: 048
     Dates: start: 20100903
  2. ATORVASTATIN [Concomitant]
     Active Substance: ATORVASTATIN
     Indication: PRODUCT USED FOR UNKNOWN INDICATION
  3. SERC [Concomitant]
     Active Substance: BETAHISTINE HYDROCHLORIDE
     Indication: PRODUCT USED FOR UNKNOWN INDICATION
  4. TRAMADOL. [Suspect]
     Active Substance: TRAMADOL
     Indication: BACK PAIN
     Dosage: 150 MG, QD
     Route: 048
  5. PARACETAMOL [Concomitant]
     Active Substance: ACETAMINOPHEN
     Indication: PRODUCT USED FOR UNKNOWN INDICATION
  6. LACTULOSE. [Concomitant]
     Active Substance: LACTULOSE
     Indication: PRODUCT USED FOR UNKNOWN INDICATION

REACTIONS (6)
  - Fatigue [Recovered/Resolved]
  - Tearfulness [Recovered/Resolved]
  - Sleep disorder [Recovered/Resolved]
  - Dizziness [Recovered/Resolved]
  - Drug withdrawal syndrome [Recovered/Resolved]
  - Asthenia [Recovered/Resolved]

NARRATIVE: CASE EVENT DATE: 20171116
